FAERS Safety Report 10560530 (Version 2)
Quarter: 2014Q4

REPORT INFORMATION
  Report Type: Spontaneous
  Country: JP (occurrence: JP)
  Receive Date: 20141103
  Receipt Date: 20141103
  Transmission Date: 20150529
  Serious: Yes (Hospitalization, Other)
  Sender: FDA-Public Use
  Company Number: JP-GLAXOSMITHKLINE-B1029347A

PATIENT
  Age: 46 Year
  Sex: Male

DRUGS (12)
  1. ABACAVIR SULFATE + LAMIVUDINE [Suspect]
     Active Substance: ABACAVIR SULFATE\LAMIVUDINE
     Route: 048
     Dates: start: 20121225, end: 20130302
  2. ZIAGEN [Concomitant]
     Active Substance: ABACAVIR SULFATE
     Route: 048
     Dates: start: 20130303
  3. SAMITREL [Concomitant]
     Indication: PNEUMOCYSTIS JIROVECII PNEUMONIA
     Dosage: 750 MG, BID
     Route: 048
     Dates: start: 20130305, end: 20130319
  4. ABACAVIR SULFATE + LAMIVUDINE [Suspect]
     Active Substance: ABACAVIR SULFATE\LAMIVUDINE
     Indication: HIV INFECTION
     Route: 048
     Dates: start: 20120417, end: 20120418
  5. ISENTRESS [Suspect]
     Active Substance: RALTEGRAVIR POTASSIUM
     Indication: HIV INFECTION
     Route: 048
     Dates: start: 20121225
  6. SAMITREL [Concomitant]
     Dosage: 750 MG, BID
     Route: 048
     Dates: start: 20130320
  7. BAKTAR [Suspect]
     Active Substance: SULFAMETHOXAZOLE\TRIMETHOPRIM
     Indication: PNEUMOCYSTIS JIROVECII PNEUMONIA
     Dosage: 3 G, TID
     Dates: start: 20130227, end: 20130305
  8. VALIXA [Concomitant]
     Active Substance: VALGANCICLOVIR
     Dosage: 900 MG, QD
     Route: 048
     Dates: start: 201108
  9. ISENTRESS [Suspect]
     Active Substance: RALTEGRAVIR POTASSIUM
     Indication: HIV INFECTION
     Route: 048
     Dates: start: 20120417, end: 20120418
  10. EPIVIR [Concomitant]
     Active Substance: LAMIVUDINE
     Route: 048
     Dates: start: 20130303
  11. VALIXA [Concomitant]
     Active Substance: VALGANCICLOVIR
     Indication: CYTOMEGALOVIRUS INFECTION
     Dosage: 900 MG, BID
     Dates: start: 201106, end: 201108
  12. ZITHROMAC [Concomitant]
     Active Substance: AZITHROMYCIN DIHYDRATE
     Indication: OPPORTUNISTIC INFECTION PROPHYLAXIS
     Route: 048

REACTIONS (6)
  - Pneumocystis jirovecii pneumonia [Recovering/Resolving]
  - Pyrexia [Recovering/Resolving]
  - Nausea [Recovered/Resolved]
  - Cough [Recovering/Resolving]
  - Immune reconstitution inflammatory syndrome [Recovering/Resolving]
  - Rhinorrhoea [Recovering/Resolving]

NARRATIVE: CASE EVENT DATE: 20130211
